FAERS Safety Report 5188301-3 (Version None)
Quarter: 2006Q4

REPORT INFORMATION
  Report Type: 
  Country: None (occurrence: None)
  Receive Date: 20061221
  Receipt Date: 20061213
  Transmission Date: 20070319
  Serious: Yes (Other)
  Sender: FDA-Public Use
  Company Number: CA-ROCHE-474878

PATIENT
  Age: 75 Year
  Sex: Male
  Weight: 59 kg

DRUGS (1)
  1. TORADOL [Suspect]
     Indication: DRUG USE FOR UNKNOWN INDICATION
     Dosage: FREQUENCY REPORTED AS: FIRST DOSE.
     Route: 030

REACTIONS (4)
  - BONE PAIN [None]
  - MUSCLE RIGIDITY [None]
  - OEDEMA [None]
  - PAIN IN EXTREMITY [None]
